FAERS Safety Report 5618230-X (Version None)
Quarter: 2008Q1

REPORT INFORMATION
  Report Type: 
  Country: None (occurrence: None)
  Receive Date: 20080206
  Receipt Date: 20080206
  Transmission Date: 20080703
  Serious: Yes (Hospitalization)
  Sender: FDA-Public Use
  Company Number: None

PATIENT
  Sex: Female

DRUGS (2)
  1. FLUDARABINE [Suspect]
     Indication: BONE MARROW CONDITIONING REGIMEN
     Dosage: 50 MG DAILY IV DRIP
     Route: 041
     Dates: start: 20070809, end: 20070813
  2. THIOTEPA [Suspect]
     Dosage: 340 MG DAILY IV DRIP
     Route: 041
     Dates: start: 20070809, end: 20070810

REACTIONS (6)
  - BLOOD PRESSURE DECREASED [None]
  - GENERAL PHYSICAL HEALTH DETERIORATION [None]
  - HYPOXIA [None]
  - INFECTION [None]
  - LUNG DISORDER [None]
  - RESPIRATORY DISTRESS [None]
